FAERS Safety Report 4699731-8 (Version None)
Quarter: 2005Q2

REPORT INFORMATION
  Report Type: 
  Country: None (occurrence: None)
  Receive Date: 20050624
  Receipt Date: 20050117
  Transmission Date: 20051028
  Serious: Yes (Death, Other)
  Sender: FDA-Public Use
  Company Number: IE-ABBOTT-05P-229-0287197-00

PATIENT
  Sex: Male

DRUGS (2)
  1. KLACID [Suspect]
     Indication: PNEUMONIA
     Route: 048
     Dates: start: 20050104, end: 20050111
  2. KLACID [Suspect]
     Indication: LOWER RESPIRATORY TRACT INFECTION

REACTIONS (4)
  - COMPLETED SUICIDE [None]
  - DELUSIONAL DISORDER, UNSPECIFIED TYPE [None]
  - HALLUCINATION [None]
  - SLEEP DISORDER [None]
